FAERS Safety Report 4957557-1 (Version None)
Quarter: 2006Q1

REPORT INFORMATION
  Report Type: 
  Country: None (occurrence: None)
  Receive Date: 20060330
  Receipt Date: 20060221
  Transmission Date: 20060701
  Serious: No
  Sender: FDA-Public Use
  Company Number: US-GLAXOSMITHKLINE-A0594626A

PATIENT
  Age: 40 Year
  Sex: Female

DRUGS (3)
  1. FLOVENT [Suspect]
     Indication: ASTHMA
     Dosage: 2PUFF TWICE PER DAY
     Route: 055
     Dates: start: 20060213, end: 20060216
  2. MEDROL [Concomitant]
  3. ERYTHROMYCIN [Concomitant]

REACTIONS (3)
  - AGEUSIA [None]
  - LOCAL SWELLING [None]
  - PARAESTHESIA ORAL [None]
